FAERS Safety Report 17115526 (Version 1)
Quarter: 2019Q4

REPORT INFORMATION
  Report Type: Spontaneous
  Country: US (occurrence: US)
  Receive Date: 20191205
  Receipt Date: 20191205
  Transmission Date: 20200122
  Serious: Yes (Other)
  Sender: FDA-Public Use
  Company Number: US-TEVA-2019-US-1147767

PATIENT
  Age: 9 Year
  Sex: Female

DRUGS (2)
  1. ACTAVIS PREDNISONE TABLETS [Suspect]
     Active Substance: PREDNISONE
     Indication: CROHN^S DISEASE
     Dosage: 2 DOSAGE FORMS DAILY; PER DAY
     Dates: start: 20191015
  2. ENTYVIO [Suspect]
     Active Substance: VEDOLIZUMAB
     Dates: start: 201908

REACTIONS (8)
  - Drug ineffective [Unknown]
  - Product prescribing error [Unknown]
  - Colitis [Unknown]
  - Blood count abnormal [Unknown]
  - Gastritis [Unknown]
  - Oesophagitis [Unknown]
  - Gastrointestinal inflammation [Unknown]
  - Inflammation [Unknown]

NARRATIVE: CASE EVENT DATE: 20191015
